FAERS Safety Report 4562853-6 (Version None)
Quarter: 2005Q1

REPORT INFORMATION
  Report Type: 
  Country: None (occurrence: None)
  Receive Date: 20050127
  Receipt Date: 20050117
  Transmission Date: 20050727
  Serious: Yes (Hospitalization)
  Sender: FDA-Public Use
  Company Number: PHBS2005CH00950

PATIENT
  Age: 70 Year
  Sex: Male

DRUGS (10)
  1. VOLTAREN [Suspect]
     Dosage: 100 MG, PRN
  2. FRAXIPARINE [Suspect]
     Route: 058
  3. MARCOUMAR [Suspect]
     Dosage: 3 MG/DAY
  4. PREDNISONE [Suspect]
     Dosage: 40 MG/DAY
  5. NEURONTIN [Suspect]
  6. PANTOZOL [Concomitant]
  7. DIGOXIN [Concomitant]
     Dosage: 0.125 MG/DAY
  8. AMILORIDE W/HYDROCHLOROTHIAZIDE [Concomitant]
     Dosage: 0.5 TAB/DAY
  9. TRAMADOL HCL [Concomitant]
     Dosage: 100 MG/DAY
  10. MIACALCIN [Concomitant]
     Dosage: 600 IU/DAY

REACTIONS (8)
  - ABDOMINAL PAIN LOWER [None]
  - ANAEMIA [None]
  - HAEMATOMA [None]
  - HAEMOGLOBIN DECREASED [None]
  - INTERNATIONAL NORMALISED RATIO DECREASED [None]
  - PROTHROMBIN TIME PROLONGED [None]
  - SHOCK [None]
  - SURGERY [None]
